FAERS Safety Report 5589674-X (Version None)
Quarter: 2008Q1

REPORT INFORMATION
  Report Type: 
  Country: None (occurrence: None)
  Receive Date: 20080114
  Receipt Date: 20080103
  Transmission Date: 20080703
  Serious: Yes (Other)
  Sender: FDA-Public Use
  Company Number: B0380484A

PATIENT
  Sex: Female

DRUGS (4)
  1. SEROXAT [Suspect]
     Indication: DEPRESSION
     Dosage: 20MG UNKNOWN
     Route: 065
     Dates: start: 19980520
  2. LORAZEPAM [Concomitant]
     Indication: PANIC ATTACK
     Route: 065
     Dates: start: 19980608, end: 20000214
  3. EFFEXOR [Concomitant]
     Dates: start: 20001102
  4. OXAZEPAM [Concomitant]
     Dates: start: 20001130

REACTIONS (22)
  - ABORTION INDUCED [None]
  - AGGRESSION [None]
  - AGITATION [None]
  - AMNESIA [None]
  - ANXIETY [None]
  - CONFUSIONAL STATE [None]
  - DEPRESSED MOOD [None]
  - DEPRESSION [None]
  - DIARRHOEA [None]
  - DIZZINESS [None]
  - FATIGUE [None]
  - HYPERHIDROSIS [None]
  - LETHARGY [None]
  - MOOD SWINGS [None]
  - NAUSEA [None]
  - NIGHTMARE [None]
  - SLEEP DISORDER [None]
  - SOMNOLENCE [None]
  - SUICIDAL IDEATION [None]
  - TREMOR [None]
  - WEIGHT INCREASED [None]
  - WITHDRAWAL SYNDROME [None]
